FAERS Safety Report 21467235 (Version 1)
Quarter: 2022Q4

REPORT INFORMATION
  Report Type: Spontaneous
  Country: DE (occurrence: None)
  Receive Date: 20221017
  Receipt Date: 20221017
  Transmission Date: 20230113
  Serious: Yes (Death, Other)
  Sender: FDA-Public Use
  Company Number: 2022A347326

PATIENT
  Age: 27 Year
  Sex: Male
  Weight: 124 kg

DRUGS (4)
  1. OXIS [Suspect]
     Active Substance: FORMOTEROL FUMARATE
     Indication: Asthma
     Dosage: 2 - 0 - 2
     Route: 055
  2. PULMICORT TURBUHALER [Suspect]
     Active Substance: BUDESONIDE
     Indication: Asthma
     Dosage: PULMICORT 2-2-2
     Route: 055
  3. SINGULAIR [Concomitant]
     Active Substance: MONTELUKAST SODIUM
     Dosage: SINGULAIR 0 - 0 - 1
     Route: 065
  4. THEOPHYLLINE ANHYDROUS [Concomitant]
     Active Substance: THEOPHYLLINE ANHYDROUS
     Dosage: THEOPHYLLIN 250 1- 0 - 1
     Route: 065

REACTIONS (3)
  - Status asthmaticus [Fatal]
  - Cardiac failure [Fatal]
  - Acute respiratory failure [Fatal]
